FAERS Safety Report 4476103-2 (Version None)
Quarter: 2004Q3

REPORT INFORMATION
  Report Type: 
  Country: None (occurrence: None)
  Receive Date: 20040923
  Receipt Date: 20040622
  Transmission Date: 20050211
  Serious: No
  Sender: FDA-Public Use
  Company Number: USA040670845

PATIENT
  Age: 70 Year
  Sex: Female

DRUGS (6)
  1. FORTEO [Suspect]
     Indication: OSTEOPOROSIS
     Dosage: 20 UG DAY
     Dates: start: 20040614
  2. METHOTREXATE SODIUM [Concomitant]
  3. PLAQUENIL [Concomitant]
  4. PROTONIX [Concomitant]
  5. IRON SUPPLEMENT [Concomitant]
  6. HYDROCODONE W APAP [Concomitant]

REACTIONS (3)
  - BRADYPHRENIA [None]
  - SLUGGISHNESS [None]
  - SOMNOLENCE [None]
